FAERS Safety Report 9795895 (Version 1)
Quarter: 2014Q1

REPORT INFORMATION
  Report Type: Report from Study
  Country: LB (occurrence: LB)
  Receive Date: 20140103
  Receipt Date: 20140103
  Transmission Date: 20141002
  Serious: Yes (Disabling)
  Sender: FDA-Public Use
  Company Number: LB-SA-2013SA135113

PATIENT
  Sex: Female

DRUGS (13)
  1. LANTUS SOLOSTAR [Suspect]
     Indication: DIABETES MELLITUS
     Dosage: 55 U AM 20 U PM
     Route: 058
     Dates: start: 2013
  2. JANUMET [Concomitant]
     Indication: DIABETES MELLITUS
     Route: 048
  3. GLIMEPIRIDE [Concomitant]
     Indication: DIABETES MELLITUS
     Route: 048
  4. NEFAZAN [Concomitant]
     Route: 048
  5. LIPANTHYL [Concomitant]
     Route: 048
  6. AMLODIPINE BESILATE [Concomitant]
     Route: 048
  7. CORVASAL [Concomitant]
     Route: 048
  8. XYZAL [Concomitant]
     Route: 048
  9. RANITIDINE HYDROCHLORIDE [Concomitant]
     Route: 048
  10. CONCOR [Concomitant]
     Route: 048
  11. GASTRIMUT [Concomitant]
     Route: 048
  12. ASPICOT [Concomitant]
     Route: 048
  13. GABAPENTIN [Concomitant]
     Route: 048

REACTIONS (3)
  - Chest injury [Recovered/Resolved]
  - Rib fracture [Recovered/Resolved]
  - Off label use [Unknown]
